FAERS Safety Report 20016058 (Version 1)
Quarter: 2021Q4

REPORT INFORMATION
  Report Type: Spontaneous
  Country: US (occurrence: None)
  Receive Date: 20211102
  Receipt Date: 20211102
  Transmission Date: 20220304
  Serious: Yes (Other)
  Sender: FDA-Public Use
  Company Number: None

PATIENT
  Age: 46 Year
  Sex: Female
  Weight: 71.7 kg

DRUGS (1)
  1. BAMLANIVIMAB\ETESEVIMAB [Suspect]
     Active Substance: BAMLANIVIMAB\ETESEVIMAB
     Dates: start: 20211102, end: 20211102

REACTIONS (4)
  - Infusion related hypersensitivity reaction [None]
  - Dyspnoea [None]
  - Skin discolouration [None]
  - Therapy interrupted [None]

NARRATIVE: CASE EVENT DATE: 20211102
